FAERS Safety Report 6219070-3 (Version None)
Quarter: 2009Q2

REPORT INFORMATION
  Report Type: 
  Country: None (occurrence: None)
  Receive Date: 20090609
  Receipt Date: 20071010
  Transmission Date: 20091009
  Serious: Yes (Other)
  Sender: FDA-Public Use
  Company Number: US-ASTRAZENECA-2006UW21005

PATIENT
  Age: 13 Year
  Sex: Female
  Weight: 147.1 kg

DRUGS (20)
  1. SEROQUEL [Suspect]
     Indication: BIPOLAR DISORDER
     Route: 048
     Dates: start: 20011029, end: 20030101
  2. SEROQUEL [Suspect]
     Indication: DEPRESSION
     Route: 048
     Dates: start: 20011029, end: 20030101
  3. SEROQUEL [Suspect]
     Dosage: 25 MG TO 600 MG DAILY
     Route: 048
     Dates: start: 20001009, end: 20030618
  4. SEROQUEL [Suspect]
     Dosage: 25 MG TO 600 MG DAILY
     Route: 048
     Dates: start: 20001009, end: 20030618
  5. ABILIFY [Concomitant]
  6. CLOZARIL [Concomitant]
  7. GEODON [Concomitant]
  8. HALDOL [Concomitant]
  9. RISPERDAL [Concomitant]
  10. THORAZINE [Concomitant]
  11. ZYPREXA [Concomitant]
  12. TOPAMAX [Concomitant]
     Dosage: 25 MG TO 300 MG DAILY
     Route: 048
     Dates: start: 20011109
  13. ZOLOFT [Concomitant]
     Dosage: 25 MG TO 100 MG DAILY
     Route: 048
     Dates: start: 19981117
  14. METFORMIN HYDROCHLORIDE [Concomitant]
     Dosage: 500 MG TO 1000 MG DAILY
     Route: 048
     Dates: start: 20041027
  15. DIAMOX [Concomitant]
     Dosage: 1500 MG TO 4500 MG DAILY
     Route: 048
     Dates: start: 20061021
  16. EFFEXOR XR [Concomitant]
     Dosage: 75 MG TO 450 MG DAILY
     Route: 048
     Dates: start: 20060112
  17. NEURONTIN [Concomitant]
     Dosage: 100 MG TO 400 MG
     Route: 048
     Dates: start: 20030718
  18. NEURONTIN [Concomitant]
     Route: 048
     Dates: start: 20030718
  19. TYLENOL (CAPLET) [Concomitant]
     Dosage: 325 MG, 2 TAB EVERY 4 HRS AS NEEDED
     Route: 048
     Dates: start: 20031016
  20. NOVOLIN R [Concomitant]
     Route: 058
     Dates: start: 20061022

REACTIONS (6)
  - DIABETES MELLITUS [None]
  - HEADACHE [None]
  - MIGRAINE [None]
  - NEUROLEPTIC MALIGNANT SYNDROME [None]
  - OBESITY [None]
  - TYPE 2 DIABETES MELLITUS [None]
